FAERS Safety Report 7544266-8 (Version None)
Quarter: 2011Q2

REPORT INFORMATION
  Report Type: 
  Country: None (occurrence: None)
  Receive Date: 20110613
  Receipt Date: 20071102
  Transmission Date: 20111010
  Serious: Yes (Other)
  Sender: FDA-Public Use
  Company Number: PHFR2007GB02557

PATIENT
  Sex: Female

DRUGS (6)
  1. CLOZAPINE [Suspect]
  2. CLOZAPINE [Suspect]
     Indication: SCHIZOPHRENIA
     Dosage: 150 MG DAILY
     Route: 048
     Dates: start: 20070817, end: 20070826
  3. OLANZAPINE [Concomitant]
     Indication: PSYCHOTIC DISORDER
     Dates: start: 20070806, end: 20070829
  4. VALPROATE SODIUM [Concomitant]
     Indication: MENTAL DISORDER
     Dosage: 1600 MG PER DAY
     Route: 048
  5. LITHIUM CARBONATE [Concomitant]
     Indication: MENTAL DISORDER
     Dosage: 400 MG PER DAY
     Route: 048
  6. CLOMIPRAMINE HYDROCHLORIDE [Concomitant]
     Indication: DEPRESSION
     Dosage: 225 MG PER DAY
     Route: 048

REACTIONS (9)
  - HYPERSENSITIVITY [None]
  - CONFUSIONAL STATE [None]
  - LOWER RESPIRATORY TRACT INFECTION [None]
  - DISORIENTATION [None]
  - BLISTER [None]
  - SOMNOLENCE [None]
  - RASH [None]
  - SWELLING FACE [None]
  - OEDEMA PERIPHERAL [None]
